FAERS Safety Report 9799587 (Version 1)
Quarter: 2014Q1

REPORT INFORMATION
  Report Type: Spontaneous
  Country: US (occurrence: US)
  Receive Date: 20140106
  Receipt Date: 20140106
  Transmission Date: 20141002
  Serious: No
  Sender: FDA-Public Use
  Company Number: US-GILEAD-2010-0031440

PATIENT
  Age: 68 Year
  Sex: Female
  Weight: 70.31 kg

DRUGS (5)
  1. LETAIRIS [Suspect]
     Indication: PULMONARY ARTERIAL HYPERTENSION
     Route: 048
     Dates: start: 20090428
  2. LASIX [Concomitant]
  3. ALTACE [Concomitant]
  4. COUMADIN [Concomitant]
  5. POTASSIUM CHLORIDE [Concomitant]

REACTIONS (2)
  - Fatigue [Unknown]
  - Oedema [Unknown]
